FAERS Safety Report 15679004 (Version 3)
Quarter: 2025Q3

REPORT INFORMATION
  Report Type: Spontaneous
  Country: EU (occurrence: EU)
  Receive Date: 20181202
  Receipt Date: 20250726
  Transmission Date: 20251021
  Serious: Yes (Hospitalization)
  Sender: AUROBINDO
  Company Number: EU-AUROBINDO-AUR-APL-2018-057925

PATIENT
  Age: 81 Year
  Sex: Female

DRUGS (1)
  1. AMIODARONE [Suspect]
     Active Substance: AMIODARONE
     Indication: Atrial fibrillation
     Route: 065

REACTIONS (1)
  - Pneumonitis [Recovered/Resolved]
